FAERS Safety Report 25124928 (Version 1)
Quarter: 2025Q1

REPORT INFORMATION
  Report Type: Spontaneous
  Country: CA (occurrence: CA)
  Receive Date: 20250326
  Receipt Date: 20250326
  Transmission Date: 20250408
  Serious: Yes (Hospitalization)
  Sender: MYLAN
  Company Number: CA-MYLANLABS-2025M1024247

PATIENT
  Age: 52 Year
  Sex: Female

DRUGS (112)
  1. VALPROIC ACID [Suspect]
     Active Substance: VALPROIC ACID
     Indication: Product used for unknown indication
  2. VALPROIC ACID [Suspect]
     Active Substance: VALPROIC ACID
  3. VALPROIC ACID [Suspect]
     Active Substance: VALPROIC ACID
     Route: 065
  4. VALPROIC ACID [Suspect]
     Active Substance: VALPROIC ACID
     Route: 065
  5. VALPROIC ACID [Suspect]
     Active Substance: VALPROIC ACID
     Dosage: 2500 MILLIGRAM, QD (1 EVERY 1 DAY)
  6. VALPROIC ACID [Suspect]
     Active Substance: VALPROIC ACID
     Dosage: 2500 MILLIGRAM, QD (1 EVERY 1 DAY)
  7. VALPROIC ACID [Suspect]
     Active Substance: VALPROIC ACID
     Dosage: 2500 MILLIGRAM, QD (1 EVERY 1 DAY)
     Route: 048
  8. VALPROIC ACID [Suspect]
     Active Substance: VALPROIC ACID
     Dosage: 2500 MILLIGRAM, QD (1 EVERY 1 DAY)
     Route: 048
  9. VALPROIC ACID [Suspect]
     Active Substance: VALPROIC ACID
     Dosage: 1500 MILLIGRAM, QD (1 EVERY 1 DAY)
  10. VALPROIC ACID [Suspect]
     Active Substance: VALPROIC ACID
     Dosage: 1500 MILLIGRAM, QD (1 EVERY 1 DAY)
     Route: 048
  11. VALPROIC ACID [Suspect]
     Active Substance: VALPROIC ACID
     Dosage: 1500 MILLIGRAM, QD (1 EVERY 1 DAY)
  12. VALPROIC ACID [Suspect]
     Active Substance: VALPROIC ACID
     Dosage: 1500 MILLIGRAM, QD (1 EVERY 1 DAY)
     Route: 048
  13. ACETAMINOPHEN [Suspect]
     Active Substance: ACETAMINOPHEN
     Indication: Pain in extremity
  14. ACETAMINOPHEN [Suspect]
     Active Substance: ACETAMINOPHEN
     Route: 048
  15. ACETAMINOPHEN [Suspect]
     Active Substance: ACETAMINOPHEN
     Route: 048
  16. ACETAMINOPHEN [Suspect]
     Active Substance: ACETAMINOPHEN
  17. APTIVUS [Suspect]
     Active Substance: TIPRANAVIR
     Indication: HIV infection
     Dosage: 500 MILLIGRAM, QD (1 EVERY 1 DAYS)
  18. APTIVUS [Suspect]
     Active Substance: TIPRANAVIR
     Dosage: 500 MILLIGRAM, QD (1 EVERY 1 DAYS)
     Route: 048
  19. APTIVUS [Suspect]
     Active Substance: TIPRANAVIR
     Dosage: 500 MILLIGRAM, QD (1 EVERY 1 DAYS)
     Route: 048
  20. APTIVUS [Suspect]
     Active Substance: TIPRANAVIR
     Dosage: 500 MILLIGRAM, QD (1 EVERY 1 DAYS)
  21. CLONAZEPAM [Suspect]
     Active Substance: CLONAZEPAM
     Indication: Hypomania
     Dosage: 3 MILLIGRAM, QD (1 EVERY 1 DAY)
  22. CLONAZEPAM [Suspect]
     Active Substance: CLONAZEPAM
     Dosage: 3 MILLIGRAM, QD (1 EVERY 1 DAY)
     Route: 048
  23. CLONAZEPAM [Suspect]
     Active Substance: CLONAZEPAM
     Dosage: 3 MILLIGRAM, QD (1 EVERY 1 DAY)
     Route: 048
  24. CLONAZEPAM [Suspect]
     Active Substance: CLONAZEPAM
     Dosage: 3 MILLIGRAM, QD (1 EVERY 1 DAY)
  25. DIAZEPAM [Suspect]
     Active Substance: DIAZEPAM
     Indication: Depression
  26. DIAZEPAM [Suspect]
     Active Substance: DIAZEPAM
  27. DIAZEPAM [Suspect]
     Active Substance: DIAZEPAM
     Route: 065
  28. DIAZEPAM [Suspect]
     Active Substance: DIAZEPAM
     Route: 065
  29. DIAZEPAM [Suspect]
     Active Substance: DIAZEPAM
     Dosage: 1500 MILLIGRAM, QD (1 EVERY 1 DAY)
  30. DIAZEPAM [Suspect]
     Active Substance: DIAZEPAM
     Dosage: 1500 MILLIGRAM, QD (1 EVERY 1 DAY)
  31. DIAZEPAM [Suspect]
     Active Substance: DIAZEPAM
     Dosage: 1500 MILLIGRAM, QD (1 EVERY 1 DAY)
     Route: 065
  32. DIAZEPAM [Suspect]
     Active Substance: DIAZEPAM
     Dosage: 1500 MILLIGRAM, QD (1 EVERY 1 DAY)
     Route: 065
  33. DIAZEPAM [Suspect]
     Active Substance: DIAZEPAM
     Dosage: 250 MILLIGRAM, BID (2 EVERY 1 DAY)
  34. DIAZEPAM [Suspect]
     Active Substance: DIAZEPAM
     Dosage: 250 MILLIGRAM, BID (2 EVERY 1 DAY)
     Route: 048
  35. DIAZEPAM [Suspect]
     Active Substance: DIAZEPAM
     Dosage: 250 MILLIGRAM, BID (2 EVERY 1 DAY)
  36. DIAZEPAM [Suspect]
     Active Substance: DIAZEPAM
     Dosage: 250 MILLIGRAM, BID (2 EVERY 1 DAY)
     Route: 048
  37. TRAZODONE [Suspect]
     Active Substance: TRAZODONE HYDROCHLORIDE
     Indication: Depression
     Dosage: 50 MILLIGRAM, QD (1 EVERY 1 DAY)
  38. TRAZODONE [Suspect]
     Active Substance: TRAZODONE HYDROCHLORIDE
     Dosage: 50 MILLIGRAM, QD (1 EVERY 1 DAY)
     Route: 048
  39. TRAZODONE [Suspect]
     Active Substance: TRAZODONE HYDROCHLORIDE
     Dosage: 50 MILLIGRAM, QD (1 EVERY 1 DAY)
     Route: 048
  40. TRAZODONE [Suspect]
     Active Substance: TRAZODONE HYDROCHLORIDE
     Dosage: 50 MILLIGRAM, QD (1 EVERY 1 DAY)
  41. TEGRETOL [Suspect]
     Active Substance: CARBAMAZEPINE
     Indication: Hypomania
     Dosage: 200 MILLIGRAM, BID (2 EVERY 1 DAY)
  42. TEGRETOL [Suspect]
     Active Substance: CARBAMAZEPINE
     Dosage: 200 MILLIGRAM, BID (2 EVERY 1 DAY)
     Route: 065
  43. TEGRETOL [Suspect]
     Active Substance: CARBAMAZEPINE
     Dosage: 200 MILLIGRAM, BID (2 EVERY 1 DAY)
     Route: 065
  44. TEGRETOL [Suspect]
     Active Substance: CARBAMAZEPINE
     Dosage: 200 MILLIGRAM, BID (2 EVERY 1 DAY)
  45. OLANZAPINE [Suspect]
     Active Substance: OLANZAPINE
     Indication: Product used for unknown indication
     Dosage: 5 MILLIGRAM, QD (1 EVERY 1 DAYS)
  46. OLANZAPINE [Suspect]
     Active Substance: OLANZAPINE
     Dosage: 5 MILLIGRAM, QD (1 EVERY 1 DAYS)
  47. OLANZAPINE [Suspect]
     Active Substance: OLANZAPINE
     Dosage: 5 MILLIGRAM, QD (1 EVERY 1 DAYS)
     Route: 048
  48. OLANZAPINE [Suspect]
     Active Substance: OLANZAPINE
     Dosage: 5 MILLIGRAM, QD (1 EVERY 1 DAYS)
     Route: 048
  49. OLANZAPINE [Suspect]
     Active Substance: OLANZAPINE
     Dosage: 12.5 MILLIGRAM, QD (1 EVERY 1 DAY)
  50. OLANZAPINE [Suspect]
     Active Substance: OLANZAPINE
     Dosage: 12.5 MILLIGRAM, QD (1 EVERY 1 DAY)
  51. OLANZAPINE [Suspect]
     Active Substance: OLANZAPINE
     Dosage: 12.5 MILLIGRAM, QD (1 EVERY 1 DAY)
     Route: 048
  52. OLANZAPINE [Suspect]
     Active Substance: OLANZAPINE
     Dosage: 12.5 MILLIGRAM, QD (1 EVERY 1 DAY)
     Route: 048
  53. PROCYCLIDINE HYDROCHLORIDE [Suspect]
     Active Substance: PROCYCLIDINE HYDROCHLORIDE
     Indication: Prophylaxis
     Dosage: 2.5 MILLIGRAM, QD (1 EVERY 1 DAY)
  54. PROCYCLIDINE HYDROCHLORIDE [Suspect]
     Active Substance: PROCYCLIDINE HYDROCHLORIDE
     Indication: Musculoskeletal stiffness
     Dosage: 2.5 MILLIGRAM, QD (1 EVERY 1 DAY)
     Route: 048
  55. PROCYCLIDINE HYDROCHLORIDE [Suspect]
     Active Substance: PROCYCLIDINE HYDROCHLORIDE
     Dosage: 2.5 MILLIGRAM, QD (1 EVERY 1 DAY)
     Route: 048
  56. PROCYCLIDINE HYDROCHLORIDE [Suspect]
     Active Substance: PROCYCLIDINE HYDROCHLORIDE
     Dosage: 2.5 MILLIGRAM, QD (1 EVERY 1 DAY)
  57. QUETIAPINE [Suspect]
     Active Substance: QUETIAPINE
     Indication: Psychotic disorder
     Dosage: 50 MILLIGRAM, QD (1 EVERY 1 DAY)
  58. QUETIAPINE [Suspect]
     Active Substance: QUETIAPINE
     Dosage: 50 MILLIGRAM, QD (1 EVERY 1 DAY)
     Route: 065
  59. QUETIAPINE [Suspect]
     Active Substance: QUETIAPINE
     Dosage: 50 MILLIGRAM, QD (1 EVERY 1 DAY)
     Route: 065
  60. QUETIAPINE [Suspect]
     Active Substance: QUETIAPINE
     Dosage: 50 MILLIGRAM, QD (1 EVERY 1 DAY)
  61. RISPERIDONE [Suspect]
     Active Substance: RISPERIDONE
     Indication: Psychotic disorder
     Dosage: 3 MILLIGRAM, QD (1 EVERY 1 DAY)
  62. RISPERIDONE [Suspect]
     Active Substance: RISPERIDONE
     Dosage: 3 MILLIGRAM, QD (1 EVERY 1 DAY)
     Route: 048
  63. RISPERIDONE [Suspect]
     Active Substance: RISPERIDONE
     Dosage: 3 MILLIGRAM, QD (1 EVERY 1 DAY)
     Route: 048
  64. RISPERIDONE [Suspect]
     Active Substance: RISPERIDONE
     Dosage: 3 MILLIGRAM, QD (1 EVERY 1 DAY)
  65. SERTRALINE [Concomitant]
     Active Substance: SERTRALINE HYDROCHLORIDE
     Indication: Product used for unknown indication
  66. SERTRALINE [Concomitant]
     Active Substance: SERTRALINE HYDROCHLORIDE
     Route: 065
  67. SERTRALINE [Concomitant]
     Active Substance: SERTRALINE HYDROCHLORIDE
     Route: 065
  68. SERTRALINE [Concomitant]
     Active Substance: SERTRALINE HYDROCHLORIDE
  69. LAMIVUDINE [Concomitant]
     Active Substance: LAMIVUDINE
     Indication: Product used for unknown indication
  70. LAMIVUDINE [Concomitant]
     Active Substance: LAMIVUDINE
     Route: 065
  71. LAMIVUDINE [Concomitant]
     Active Substance: LAMIVUDINE
     Route: 065
  72. LAMIVUDINE [Concomitant]
     Active Substance: LAMIVUDINE
  73. ABACAVIR [Concomitant]
     Active Substance: ABACAVIR
     Indication: Product used for unknown indication
  74. ABACAVIR [Concomitant]
     Active Substance: ABACAVIR
     Route: 065
  75. ABACAVIR [Concomitant]
     Active Substance: ABACAVIR
     Route: 065
  76. ABACAVIR [Concomitant]
     Active Substance: ABACAVIR
  77. BISACODYL [Concomitant]
     Active Substance: BISACODYL
  78. BISACODYL [Concomitant]
     Active Substance: BISACODYL
     Route: 065
  79. BISACODYL [Concomitant]
     Active Substance: BISACODYL
     Route: 065
  80. BISACODYL [Concomitant]
     Active Substance: BISACODYL
  81. CHLORAL HYDRATE [Concomitant]
     Active Substance: CHLORAL HYDRATE
  82. CHLORAL HYDRATE [Concomitant]
     Active Substance: CHLORAL HYDRATE
     Route: 065
  83. CHLORAL HYDRATE [Concomitant]
     Active Substance: CHLORAL HYDRATE
     Route: 065
  84. CHLORAL HYDRATE [Concomitant]
     Active Substance: CHLORAL HYDRATE
  85. CALCIUM CARBONATE [Concomitant]
     Active Substance: CALCIUM CARBONATE
     Indication: Product used for unknown indication
  86. CALCIUM CARBONATE [Concomitant]
     Active Substance: CALCIUM CARBONATE
     Route: 065
  87. CALCIUM CARBONATE [Concomitant]
     Active Substance: CALCIUM CARBONATE
     Route: 065
  88. CALCIUM CARBONATE [Concomitant]
     Active Substance: CALCIUM CARBONATE
  89. IMODIUM [Concomitant]
     Active Substance: LOPERAMIDE HYDROCHLORIDE
     Indication: Product used for unknown indication
  90. IMODIUM [Concomitant]
     Active Substance: LOPERAMIDE HYDROCHLORIDE
     Route: 065
  91. IMODIUM [Concomitant]
     Active Substance: LOPERAMIDE HYDROCHLORIDE
     Route: 065
  92. IMODIUM [Concomitant]
     Active Substance: LOPERAMIDE HYDROCHLORIDE
  93. LACTULOSE [Concomitant]
     Active Substance: LACTULOSE
  94. LACTULOSE [Concomitant]
     Active Substance: LACTULOSE
     Route: 065
  95. LACTULOSE [Concomitant]
     Active Substance: LACTULOSE
     Route: 065
  96. LACTULOSE [Concomitant]
     Active Substance: LACTULOSE
  97. ENFUVIRTIDE [Concomitant]
     Active Substance: ENFUVIRTIDE
     Indication: Product used for unknown indication
  98. ENFUVIRTIDE [Concomitant]
     Active Substance: ENFUVIRTIDE
     Route: 065
  99. ENFUVIRTIDE [Concomitant]
     Active Substance: ENFUVIRTIDE
     Route: 065
  100. ENFUVIRTIDE [Concomitant]
     Active Substance: ENFUVIRTIDE
  101. LITHIUM [Concomitant]
     Active Substance: LITHIUM
     Indication: Product used for unknown indication
  102. LITHIUM [Concomitant]
     Active Substance: LITHIUM
     Route: 065
  103. LITHIUM [Concomitant]
     Active Substance: LITHIUM
     Route: 065
  104. LITHIUM [Concomitant]
     Active Substance: LITHIUM
  105. NYSTATIN [Concomitant]
     Active Substance: NYSTATIN
     Indication: Product used for unknown indication
  106. NYSTATIN [Concomitant]
     Active Substance: NYSTATIN
     Route: 065
  107. NYSTATIN [Concomitant]
     Active Substance: NYSTATIN
     Route: 065
  108. NYSTATIN [Concomitant]
     Active Substance: NYSTATIN
  109. KALETRA [Concomitant]
     Active Substance: LOPINAVIR\RITONAVIR
  110. KALETRA [Concomitant]
     Active Substance: LOPINAVIR\RITONAVIR
     Route: 065
  111. KALETRA [Concomitant]
     Active Substance: LOPINAVIR\RITONAVIR
     Route: 065
  112. KALETRA [Concomitant]
     Active Substance: LOPINAVIR\RITONAVIR

REACTIONS (6)
  - Cholelithiasis [Unknown]
  - Schizophrenia [Unknown]
  - Pneumonia [Unknown]
  - Vomiting [Unknown]
  - Nausea [Unknown]
  - Product use in unapproved indication [Unknown]
